FAERS Safety Report 6021551-2 (Version None)
Quarter: 2008Q4

REPORT INFORMATION
  Report Type: 
  Country: None (occurrence: None)
  Receive Date: 20081229
  Receipt Date: 20081217
  Transmission Date: 20090506
  Serious: Yes (Other)
  Sender: FDA-Public Use
  Company Number: PHHY2008FR32464

PATIENT
  Age: 37 Year
  Sex: Female

DRUGS (2)
  1. GLEEVEC [Suspect]
     Indication: CHRONIC MYELOID LEUKAEMIA
     Dosage: 400 MG/DAY
     Dates: start: 20051101
  2. ORAL CONTRACEPTIVE NOS [Concomitant]

REACTIONS (3)
  - ACQUIRED PORPHYRIA [None]
  - CHROMATURIA [None]
  - DERMATITIS BULLOUS [None]
